FAERS Safety Report 5594686-6 (Version None)
Quarter: 2007Q4

REPORT INFORMATION
  Report Type: 
  Country: None (occurrence: None)
  Receive Date: 20071218
  Receipt Date: 20070919
  Transmission Date: 20080405
  Serious: Yes (Hospitalization)
  Sender: FDA-Public Use
  Company Number: 07-001915

PATIENT
  Age: 37 Year
  Sex: Female
  Weight: 65.8 kg

DRUGS (3)
  1. LOESTRIN 24 FE [Suspect]
     Indication: DYSMENORRHOEA
     Dosage: 20/1000 UG, QD, ORAL
     Route: 048
     Dates: start: 20070517, end: 20070601
  2. FEMCON FE [Suspect]
     Indication: DYSMENORRHOEA
     Dosage: 0.4MG/35MCG QD, ORAL
     Route: 048
     Dates: start: 20070601, end: 20070715
  3. THYROID TAB [Concomitant]

REACTIONS (2)
  - METRORRHAGIA [None]
  - MYOCARDIAL INFARCTION [None]
